FAERS Safety Report 6282435-8 (Version None)
Quarter: 2009Q3

REPORT INFORMATION
  Report Type: 
  Country: None (occurrence: None)
  Receive Date: 20090724
  Receipt Date: 20090716
  Transmission Date: 20100115
  Serious: Yes (Hospitalization)
  Sender: FDA-Public Use
  Company Number: DK-ROCHE-644150

PATIENT
  Sex: Female
  Weight: 68.4 kg

DRUGS (4)
  1. BONIVA [Suspect]
     Indication: DRUG USE FOR UNKNOWN INDICATION
     Route: 042
     Dates: start: 20080515
  2. CENTYL-K [Concomitant]
     Indication: HYPERTENSION
     Route: 048
  3. ALMINOX [Concomitant]
     Route: 048
  4. HJERTEMAGNYL [Concomitant]

REACTIONS (5)
  - ARTHRALGIA [None]
  - HEADACHE [None]
  - MUSCLE SPASMS [None]
  - NAUSEA [None]
  - RESTLESS LEGS SYNDROME [None]
